FAERS Safety Report 6259699-X (Version None)
Quarter: 2009Q3

REPORT INFORMATION
  Report Type: 
  Country: None (occurrence: None)
  Receive Date: 20090706
  Receipt Date: 20090706
  Transmission Date: 20100115
  Serious: Yes (Other)
  Sender: FDA-Public Use
  Company Number: None

PATIENT
  Sex: Female
  Weight: 68.0396 kg

DRUGS (1)
  1. MESTINON [Suspect]
     Indication: MYASTHENIA GRAVIS
     Dosage: 60 MG 4-5 TIMES A DAY PO
     Route: 048
     Dates: start: 20090410, end: 20090610

REACTIONS (4)
  - CONDITION AGGRAVATED [None]
  - MYASTHENIA GRAVIS [None]
  - PRODUCT FRIABLE [None]
  - PRODUCT SUBSTITUTION ISSUE [None]
